FAERS Safety Report 21133731 (Version 2)
Quarter: 2022Q3

REPORT INFORMATION
  Report Type: Spontaneous
  Country: CN (occurrence: CN)
  Receive Date: 20220726
  Receipt Date: 20220929
  Transmission Date: 20221026
  Serious: Yes (Other)
  Sender: FDA-Public Use
  Company Number: CN-NOVARTISPH-NVSC2022CN167218

PATIENT
  Age: 28 Year
  Sex: Female

DRUGS (17)
  1. CYCLOSPORINE [Suspect]
     Active Substance: CYCLOSPORINE
     Indication: Systemic lupus erythematosus
     Dosage: 100 MG
     Route: 065
  2. HYDROXYCHLOROQUINE [Suspect]
     Active Substance: HYDROXYCHLOROQUINE
     Indication: Systemic lupus erythematosus
     Dosage: 200 MG
     Route: 065
  3. SILDENAFIL [Suspect]
     Active Substance: SILDENAFIL
     Indication: Pulmonary arterial hypertension
     Dosage: 75 MG
     Route: 065
  4. REMODULIN [Suspect]
     Active Substance: TREPROSTINIL
     Indication: Pulmonary arterial hypertension
     Dosage: LOW DOSE OF 0.45-TO-0.9 NG/KG/MIN
     Route: 065
  5. REMODULIN [Suspect]
     Active Substance: TREPROSTINIL
     Dosage: HIGHER DOSE OF 1.0-1.2 NG/KG/MIN
     Route: 042
  6. ASPIRIN [Suspect]
     Active Substance: ASPIRIN
     Indication: Anticoagulant therapy
     Dosage: 100 MG
     Route: 065
  7. UNSPECIFIED INGREDIENT [Suspect]
     Active Substance: UNSPECIFIED INGREDIENT
     Indication: Anticoagulant therapy
     Dosage: 4000 IU
     Route: 065
  8. PREDNISONE [Suspect]
     Active Substance: PREDNISONE
     Indication: Systemic lupus erythematosus
     Dosage: 50 MG
     Route: 065
  9. FUROSEMIDE [Suspect]
     Active Substance: FUROSEMIDE
     Indication: Product used for unknown indication
     Dosage: 20 MG, QD
     Route: 065
  10. POTASSIUM CHLORIDE [Suspect]
     Active Substance: POTASSIUM CHLORIDE
     Indication: Product used for unknown indication
     Dosage: 0.5 G, BID
     Route: 065
  11. TAMIFLU [Suspect]
     Active Substance: OSELTAMIVIR PHOSPHATE
     Indication: Influenza
     Dosage: UNK
     Route: 065
  12. CEFACLOR [Suspect]
     Active Substance: CEFACLOR
     Indication: Influenza
     Dosage: UNK
     Route: 065
  13. LIDOCAINE [Suspect]
     Active Substance: LIDOCAINE
     Indication: Epidural anaesthesia
     Dosage: 3 ML (OF 2 PERCENT)
     Route: 065
  14. LIDOCAINE [Suspect]
     Active Substance: LIDOCAINE
     Dosage: MIXTURE OF 0.5 PERCENT ROPIVACAINE AND 1 PERCENT LIDOCAINE (10 ML IN TOTAL) GIVEN TEN MINUTES LATER
     Route: 065
  15. ROPIVACAINE [Suspect]
     Active Substance: ROPIVACAINE
     Indication: Epidural anaesthesia
     Dosage: MIXTURE OF 0.5 PERCENT ROPIVACAINE AND 1 PERCENT LIDOCAINE (10 ML IN TOTAL) GIVEN TEN MINUTES LATER
     Route: 065
  16. EPINEPHRINE [Suspect]
     Active Substance: EPINEPHRINE
     Indication: Prophylaxis
     Dosage: (AT 0.01-0.02 MG/KG/MIN)
     Route: 065
  17. NOREPINEPHRINE [Suspect]
     Active Substance: NOREPINEPHRINE
     Indication: Prophylaxis
     Dosage: (0.01-0.05 MG/KG/MIN)
     Route: 065

REACTIONS (3)
  - Premature delivery [Unknown]
  - Product use in unapproved indication [Unknown]
  - Maternal exposure during pregnancy [Unknown]
